FAERS Safety Report 23904645 (Version 1)
Quarter: 2024Q2

REPORT INFORMATION
  Report Type: Spontaneous
  Country: FR (occurrence: FR)
  Receive Date: 20240527
  Receipt Date: 20240527
  Transmission Date: 20240716
  Serious: Yes (Other)
  Sender: FDA-Public Use
  Company Number: FR-AFSSAPS-AN2024000677

PATIENT
  Age: 40 Year
  Sex: Female

DRUGS (2)
  1. DOCETAXEL [Suspect]
     Active Substance: DOCETAXEL\DOCETAXEL ANHYDROUS
     Indication: Anal cancer
     Dosage: 1 DOSAGE FORM, 1 TOTAL
     Route: 042
     Dates: start: 202402, end: 202402
  2. CISPLATIN [Suspect]
     Active Substance: CISPLATIN
     Indication: Anal cancer
     Dosage: 1 DOSAGE FORM, 1 TOTAL
     Route: 042
     Dates: start: 202402, end: 202402

REACTIONS (1)
  - Anaphylactic reaction [Recovered/Resolved]

NARRATIVE: CASE EVENT DATE: 20240201
